FAERS Safety Report 11060988 (Version 3)
Quarter: 2016Q1

REPORT INFORMATION
  Report Type: Spontaneous
  Country: IT (occurrence: IT)
  Receive Date: 20150424
  Receipt Date: 20160219
  Transmission Date: 20160525
  Serious: Yes (Other)
  Sender: FDA-Public Use
  Company Number: IT-ROCHE-1567357

PATIENT
  Age: 69 Year
  Sex: Male

DRUGS (4)
  1. PERINDOPRIL [Concomitant]
     Active Substance: PERINDOPRIL
     Indication: HYPERTENSION
     Route: 048
  2. ONBREZ BREEZHALER [Concomitant]
     Active Substance: INDACATEROL
     Route: 045
  3. MACLADIN [Concomitant]
     Active Substance: CLARITHROMYCIN
     Route: 048
  4. ROCEFIN [Suspect]
     Active Substance: CEFTRIAXONE SODIUM
     Indication: PRODUCT USED FOR UNKNOWN INDICATION
     Dosage: 1 G/3.5 ML POWDER AND SOLVENT FOR SOLN FOR INJ
     Route: 030
     Dates: start: 20150306, end: 20150306

REACTIONS (5)
  - Sopor [Recovered/Resolved]
  - Hyperhidrosis [Recovered/Resolved]
  - Cyanosis [Recovered/Resolved]
  - Anaphylactic shock [Recovered/Resolved]
  - Erythema [Recovered/Resolved]

NARRATIVE: CASE EVENT DATE: 20150306
